FAERS Safety Report 4831612-9 (Version None)
Quarter: 2005Q4

REPORT INFORMATION
  Report Type: 
  Country: None (occurrence: None)
  Receive Date: 20051116
  Receipt Date: 20051103
  Transmission Date: 20060501
  Serious: Yes (Hospitalization, Disabling, Other)
  Sender: FDA-Public Use
  Company Number: 2005151439

PATIENT
  Age: 29 Year
  Sex: Female

DRUGS (2)
  1. DEPO-PROVERA [Suspect]
     Indication: CONTRACEPTION
     Dates: start: 19790101, end: 19790101
  2. DEPO-PROVERA [Suspect]
     Indication: CONTRACEPTION
     Dates: start: 19810101, end: 19810101

REACTIONS (9)
  - AMENORRHOEA [None]
  - BENIGN BREAST NEOPLASM [None]
  - BONE DENSITY DECREASED [None]
  - BREAST ABSCESS [None]
  - DERMAL CYST [None]
  - DRUG EXPOSURE BEFORE PREGNANCY [None]
  - POSTMENOPAUSE [None]
  - PREGNANCY [None]
  - SCAR [None]
